FAERS Safety Report 16073408 (Version 1)
Quarter: 2019Q1

REPORT INFORMATION
  Report Type: Other
  Country: IN (occurrence: IN)
  Receive Date: 20190314
  Receipt Date: 20190314
  Transmission Date: 20190418
  Serious: Yes (Life-Threatening, Hospitalization, Disabling)
  Sender: FDA-Public Use
  Company Number: IN-NOSTRUM LABORATORIES, INC.-2063996

PATIENT
  Sex: Female

DRUGS (2)
  1. PENTAZOCINE SOLUTION FOR INJECTION NOT OTHERWISE SPECIFIED [Suspect]
     Active Substance: PENTAZOCINE
     Route: 013
  2. PROMETHAZINE HYDROCHLORIDE. [Suspect]
     Active Substance: PROMETHAZINE HYDROCHLORIDE
     Indication: ANAESTHESIA PROCEDURE
     Route: 013

REACTIONS (3)
  - Gangrene [Recovered/Resolved with Sequelae]
  - Amputation [Recovered/Resolved with Sequelae]
  - Incorrect route of product administration [Recovered/Resolved with Sequelae]
